FAERS Safety Report 9784187 (Version 2)
Quarter: 2013Q4

REPORT INFORMATION
  Report Type: Spontaneous
  Country: AU (occurrence: AU)
  Receive Date: 20131226
  Receipt Date: 20131226
  Transmission Date: 20140711
  Serious: Yes (Other)
  Sender: FDA-Public Use
  Company Number: AU-PFIZER INC-K200900048

PATIENT
  Age: 82 Year
  Sex: Male

DRUGS (14)
  1. SEPTRA [Suspect]
     Indication: PNEUMONIA
     Dosage: 2 DF (800 MG/160 MG), 2X/DAY
  2. SEPTRA [Suspect]
     Dosage: 1 DF (800 MG/160 MG), 2X/DAY
  3. AMPICILLIN SODIUM [Concomitant]
     Indication: EVIDENCE BASED TREATMENT
     Dosage: 1 G, 1X/DAY
     Route: 042
  4. PIPERACILLIN SODIUM W/TAZOBACTAM SODIUM [Concomitant]
     Indication: EVIDENCE BASED TREATMENT
     Dosage: 4 G/0.5 G, 3X/DAY
     Route: 042
  5. CEFEPIME [Concomitant]
     Indication: PNEUMONIA STAPHYLOCOCCAL
     Dosage: 2 G, 2X/DAY
     Route: 042
  6. CEFEPIME [Concomitant]
     Indication: SERRATIA INFECTION
  7. ESOMEPRAZOLE [Concomitant]
     Dosage: 20 MG, 1X/DAY
     Route: 042
  8. OMEPRAZOLE [Concomitant]
     Indication: DEPRESSION
     Dosage: 20 MG, 2X/DAY
     Route: 042
  9. VENLAFAXINE [Concomitant]
     Indication: DEPRESSION
     Dosage: 37.5 MG, 1X/DAY
     Route: 048
  10. VENLAFAXINE [Concomitant]
     Dosage: 75 MG, 2X/DAY
     Route: 048
  11. VENLAFAXINE [Concomitant]
     Dosage: 150 MG, 1X/DAY
     Route: 048
  12. THIAMINE [Concomitant]
     Indication: PROPHYLAXIS
     Dosage: 100 MG, 1X/DAY
     Route: 048
  13. HEPARIN SODIUM [Concomitant]
     Dosage: 5000 IU, 2X/DAY
     Route: 058
  14. ESCITALOPRAM [Concomitant]
     Indication: DEPRESSION
     Dosage: UNK

REACTIONS (2)
  - Gait disturbance [Recovered/Resolved]
  - Delirium [Recovered/Resolved]
